FAERS Safety Report 15147542 (Version 7)
Quarter: 2018Q4

REPORT INFORMATION
  Report Type: Report from Study
  Country: TW (occurrence: TW)
  Receive Date: 20180716
  Receipt Date: 20181113
  Transmission Date: 20190204
  Serious: Yes (Hospitalization, Other)
  Sender: FDA-Public Use
  Company Number: TW-ACTELION-A-CH2018-171901

PATIENT
  Age: 63 Year
  Sex: Female

DRUGS (10)
  1. VENTAVIS [Concomitant]
     Active Substance: ILOPROST
     Indication: PULMONARY ARTERIAL HYPERTENSION
     Dosage: 6 DF, QD (6 VIALS PER DAY)
     Route: 055
     Dates: end: 201807
  2. TRACLEER [Suspect]
     Active Substance: BOSENTAN
     Dosage: 125 MG, BID
     Route: 048
     Dates: end: 201806
  3. TRACLEER [Suspect]
     Active Substance: BOSENTAN
     Dosage: 62.5 MG, BID
     Route: 048
     Dates: start: 201806, end: 20180726
  4. METHYCOBAL [Concomitant]
     Active Substance: METHYLCOBALAMIN
     Dosage: 500 MCG, QD
  5. OPSUMIT [Suspect]
     Active Substance: MACITENTAN
     Indication: PULMONARY ARTERIAL HYPERTENSION
     Dosage: 10 MG, QD
     Route: 048
     Dates: start: 20180727
  6. ELTROXIN [Concomitant]
     Active Substance: LEVOTHYROXINE
  7. TRACLEER [Suspect]
     Active Substance: BOSENTAN
     Indication: PULMONARY ARTERIAL HYPERTENSION
     Dosage: 62.5 MG, BID
     Route: 048
     Dates: start: 20130513
  8. FOLIC ACID. [Concomitant]
     Active Substance: FOLIC ACID
     Dosage: 5 MG, QD
  9. ADEMPAS [Concomitant]
     Active Substance: RIOCIGUAT
     Indication: PULMONARY ARTERIAL HYPERTENSION
     Dosage: 2 MG, TID
     Route: 048
     Dates: start: 2018
  10. RASITOL [Concomitant]
     Dosage: 20 MG, QD

REACTIONS (23)
  - Oedema peripheral [Recovered/Resolved]
  - Dyspnoea [Recovered/Resolved]
  - Asthenia [Recovered/Resolved]
  - Lip pain [Unknown]
  - Ascites [Unknown]
  - Constipation [Unknown]
  - Gastric polyps [Unknown]
  - Hepatic cirrhosis [Unknown]
  - Gastric ulcer [Unknown]
  - Melaena [Unknown]
  - Oedema [Recovered/Resolved]
  - Pancytopenia [Unknown]
  - Dry mouth [Unknown]
  - Transfusion [Unknown]
  - Splenomegaly [Unknown]
  - Anaemia [Unknown]
  - Ammonia increased [Unknown]
  - Mucosal haemorrhage [Unknown]
  - Hyperglycaemia [Unknown]
  - Cough [Unknown]
  - Confusional state [Unknown]
  - Stomatitis [Unknown]
  - Somnolence [Unknown]

NARRATIVE: CASE EVENT DATE: 20180507
